FAERS Safety Report 12799030 (Version 1)
Quarter: 2016Q3

REPORT INFORMATION
  Report Type: Spontaneous
  Country: PL (occurrence: PL)
  Receive Date: 20160930
  Receipt Date: 20160930
  Transmission Date: 20161109
  Serious: Yes (Other)
  Sender: FDA-Public Use
  Company Number: PL-JNJFOC-20160926846

PATIENT
  Age: 24 Year
  Sex: Male

DRUGS (1)
  1. RISPOLEPT [Suspect]
     Active Substance: RISPERIDONE
     Indication: OBSESSIVE-COMPULSIVE DISORDER
     Route: 065

REACTIONS (11)
  - Neuropathy peripheral [Unknown]
  - Product use issue [Unknown]
  - Neurogenic bladder [Unknown]
  - Hyperprolactinaemia [Unknown]
  - Obesity [Unknown]
  - Hyperacusis [Unknown]
  - Spinal osteoarthritis [Unknown]
  - Off label use [Unknown]
  - Pituitary tumour [Unknown]
  - Diarrhoea [Unknown]
  - Tachycardia [Unknown]
